FAERS Safety Report 17053878 (Version 1)
Quarter: 2019Q4

REPORT INFORMATION
  Report Type: Spontaneous
  Country: US (occurrence: US)
  Receive Date: 20191120
  Receipt Date: 20191120
  Transmission Date: 20200122
  Serious: Yes (Disabling, Other)
  Sender: FDA-Public Use
  Company Number: US-SA-2019SA317870

PATIENT
  Sex: Male

DRUGS (1)
  1. GOLD BOND ORIGINAL STRENGTH POWDER [Suspect]
     Active Substance: MENTHOL\ZINC OXIDE

REACTIONS (4)
  - Exposure to chemical pollution [Unknown]
  - Mesothelioma [Unknown]
  - Disability [Unknown]
  - Deformity [Unknown]

NARRATIVE: CASE EVENT DATE: 20191010
